FAERS Safety Report 4625045-8 (Version None)
Quarter: 2005Q2

REPORT INFORMATION
  Report Type: 
  Country: None (occurrence: None)
  Receive Date: 20050401
  Receipt Date: 20050222
  Transmission Date: 20051028
  Serious: Yes (Life-Threatening, Hospitalization)
  Sender: FDA-Public Use
  Company Number: US-BRISTOL-MYERS SQUIBB COMPANY-12870291

PATIENT
  Age: 28 Year
  Sex: Female
  Weight: 59 kg

DRUGS (5)
  1. ABILIFY [Suspect]
     Indication: BIPOLAR DISORDER
     Dosage: 1/31/05 5 MG QD;  INCR TO 10 MG ON 07-FEB-05;  INCR TO 15 MG ON 17-FEB-05; THEN D/C 21-FEB-05
     Route: 048
     Dates: start: 20050131, end: 20050221
  2. EFFEXOR XR [Concomitant]
     Dates: end: 20050217
  3. SEROQUEL [Concomitant]
  4. KLONOPIN [Concomitant]
  5. WELLBUTRIN XL [Concomitant]
     Dates: end: 20050217

REACTIONS (2)
  - BLOOD CHOLESTEROL ABNORMAL [None]
  - DYSTONIA [None]
